FAERS Safety Report 5627165-8 (Version None)
Quarter: 2008Q1

REPORT INFORMATION
  Report Type: 
  Country: None (occurrence: None)
  Receive Date: 20080213
  Receipt Date: 20080213
  Transmission Date: 20080703
  Serious: Yes (Life-Threatening, Other)
  Sender: FDA-Public Use
  Company Number: None

PATIENT
  Sex: Male
  Weight: 65.7716 kg

DRUGS (1)
  1. RITUXIMAB GENENTECH [Suspect]
     Indication: RHEUMATOID ARTHRITIS
     Dosage: CLINICAL TRIAL
     Dates: end: 20071201

REACTIONS (1)
  - MALIGNANT MELANOMA [None]
